FAERS Safety Report 7457200-6 (Version None)
Quarter: 2011Q2

REPORT INFORMATION
  Report Type: 
  Country: None (occurrence: None)
  Receive Date: 20110504
  Receipt Date: 20110502
  Transmission Date: 20111010
  Serious: No
  Sender: FDA-Public Use
  Company Number: US-PFIZER INC-2011094300

PATIENT
  Sex: Male

DRUGS (1)
  1. ADVIL PM [Suspect]
     Indication: SLEEP DISORDER
     Dosage: UNK, DAILY
     Dates: start: 20110430, end: 20110501

REACTIONS (4)
  - HEAD DISCOMFORT [None]
  - DIZZINESS [None]
  - VERTIGO [None]
  - MALAISE [None]
